FAERS Safety Report 8934440 (Version 5)
Quarter: 2014Q1

REPORT INFORMATION
  Report Type: Spontaneous
  Country: US (occurrence: US)
  Receive Date: 20121128
  Receipt Date: 20140106
  Transmission Date: 20141002
  Serious: Yes (Hospitalization, Other)
  Sender: FDA-Public Use
  Company Number: US-009507513-1211USA011538

PATIENT
  Sex: Female

DRUGS (1)
  1. FOSAMAX [Suspect]
     Indication: OSTEOPOROSIS
     Dosage: 70 MG, WEEKLY
     Route: 048
     Dates: start: 2000, end: 20110317

REACTIONS (16)
  - Femur fracture [Recovered/Resolved]
  - Intramedullary rod insertion [Unknown]
  - Surgery [Unknown]
  - Low turnover osteopathy [Unknown]
  - Hypertension [Unknown]
  - Haemoglobin decreased [Unknown]
  - Haematocrit decreased [Unknown]
  - Hypoxia [Unknown]
  - Fall [Unknown]
  - Osteopenia [Unknown]
  - Intervertebral disc degeneration [Unknown]
  - Cholelithiasis [Unknown]
  - Bone disorder [Unknown]
  - Pain in extremity [Unknown]
  - Constipation [Unknown]
  - Gastrooesophageal reflux disease [Unknown]
